FAERS Safety Report 10143948 (Version 1)
Quarter: 2014Q2

REPORT INFORMATION
  Report Type: Report from Study
  Country: CA (occurrence: CA)
  Receive Date: 20140430
  Receipt Date: 20140430
  Transmission Date: 20141212
  Serious: Yes (Hospitalization)
  Sender: FDA-Public Use
  Company Number: CA-JNJFOC-20140420169

PATIENT
  Age: 56 Year
  Sex: Female
  Weight: 112 kg

DRUGS (10)
  1. SIMPONI [Suspect]
     Indication: PSORIATIC ARTHROPATHY
     Route: 058
     Dates: start: 20131104
  2. ADALAT XL [Concomitant]
     Indication: HYPERTENSION
     Route: 048
     Dates: start: 1995
  3. DIOVAN [Concomitant]
     Indication: HYPERTENSION
     Route: 048
     Dates: start: 1995
  4. ALLOPURINOL [Concomitant]
     Indication: HYPERURICAEMIA
     Route: 048
     Dates: start: 2006
  5. SYNTHROID [Concomitant]
     Indication: HYPOTHYROIDISM
     Route: 048
     Dates: start: 2010
  6. METHOTREXATE [Concomitant]
     Indication: RHEUMATOID ARTHRITIS
     Route: 048
     Dates: start: 20140202
  7. FOLIC ACID [Concomitant]
     Indication: ADVERSE DRUG REACTION
     Route: 048
     Dates: start: 20130110
  8. ISONIAZIDE [Concomitant]
     Indication: LATENT TUBERCULOSIS
     Route: 048
     Dates: start: 20131004
  9. VITAMIN B6 [Concomitant]
     Indication: PROPHYLAXIS
     Route: 065
     Dates: start: 20131004
  10. SILKIS [Concomitant]
     Indication: PSORIASIS
     Route: 061

REACTIONS (1)
  - Hypotension [Recovered/Resolved]
